FAERS Safety Report 5073103-9 (Version None)
Quarter: 2006Q3

REPORT INFORMATION
  Report Type: 
  Country: None (occurrence: None)
  Receive Date: 20060802
  Receipt Date: 20060728
  Transmission Date: 20061208
  Serious: Yes (Hospitalization, Other)
  Sender: FDA-Public Use
  Company Number: HQWYE516131JUL06

PATIENT
  Age: 83 Year
  Sex: Female
  Weight: 54.48 kg

DRUGS (5)
  1. ADVIL PM [Suspect]
     Indication: INSOMNIA
     Dosage: 2 CAPLETS ONE TIME, ORAL
     Route: 048
     Dates: start: 20060704, end: 20060704
  2. ADVIL PM [Suspect]
     Indication: PAIN IN EXTREMITY
     Dosage: 2 CAPLETS ONE TIME, ORAL
     Route: 048
     Dates: start: 20060704, end: 20060704
  3. UNSPECIFIED VITAMINS (UNSPECIFIED VITAMINS) [Concomitant]
  4. GLUCOSAMINE W/CHONDROITIN SULFATES (ASCORBIC ACID/CHONDROITIN SULFATE/ [Concomitant]
  5. VITAMIN E [Concomitant]

REACTIONS (1)
  - RECTAL HAEMORRHAGE [None]
